FAERS Safety Report 26111729 (Version 1)
Quarter: 2025Q4

REPORT INFORMATION
  Report Type: Spontaneous
  Country: GB (occurrence: GB)
  Receive Date: 20251202
  Receipt Date: 20251202
  Transmission Date: 20260117
  Serious: Yes (Other)
  Sender: MYLAN
  Company Number: None

PATIENT
  Age: 66 Year
  Sex: Female
  Weight: 58 kg

DRUGS (9)
  1. FELODIPINE [Suspect]
     Active Substance: FELODIPINE
     Indication: Product used for unknown indication
     Dosage: 1 DOSAGE FORM, AM (ONE TO BE TAKEN EACH MORNING)
     Dates: start: 20251031
  2. BETAMETHASONE [Concomitant]
     Active Substance: BETAMETHASONE
     Dosage: 1 DOSAGE FORM, QID (1 TABLET DISSOLVED IN 10ML OF WATER AND RINSE AROUND MOUTH AND SPIT OUT FOUR TIMES DAILY)
     Dates: start: 20250919, end: 20251101
  3. FEXOFENADINE [Concomitant]
     Active Substance: FEXOFENADINE HYDROCHLORIDE
     Dosage: 1 DOSAGE FORM, QD (ONE TO BE TAKEN EACH DAY)
     Dates: start: 20250919
  4. BETAMETHASONE [Concomitant]
     Active Substance: BETAMETHASONE
     Dosage: 100 MILLILITER, BID (APPLY THINLY TWICE A DAY (MAXIMUM 4 WEEKS)
     Dates: start: 20250919, end: 20251101
  5. MINERAL OIL\PARAFFIN [Concomitant]
     Active Substance: MINERAL OIL\PARAFFIN
     Dosage: 500 GRAM (APPLY AT LEAST 3 TIMES DAILY AND CAN USE AS SOAP SUBSTITUTE)
  6. MYCOPHENOLATE MOFETIL [Concomitant]
     Active Substance: MYCOPHENOLATE MOFETIL
     Dosage: 1 DOSAGE FORM, BID (ONE TO BE TAKEN TWICE A DAY)
     Dates: start: 20251120
  7. INDAPAMIDE [Concomitant]
     Active Substance: INDAPAMIDE
     Indication: Essential hypertension
     Dosage: 1 DOSAGE FORM, AM (ONE TO BE TAKEN EACH MORNING)
  8. PREDNISOLONE [Concomitant]
     Active Substance: PREDNISOLONE
     Indication: Essential hypertension
     Dosage: 8 DOSAGE FORM, AM (EIGHT TO BE TAKEN EACH DAY IN THE MORNING AS DIRECTED BY DERMATOLOGY)
  9. BETNOVATE [Concomitant]
     Active Substance: BETAMETHASONE
     Dosage: 100 GRAM, QD (APPLY THINLY ONCE A DAY FOR 6 WEEKS)
     Dates: start: 20250919, end: 20251101

REACTIONS (1)
  - Joint swelling [Unknown]
